FAERS Safety Report 6035234-6 (Version None)
Quarter: 2009Q1

REPORT INFORMATION
  Report Type: 
  Country: None (occurrence: None)
  Receive Date: 20090109
  Receipt Date: 20090106
  Transmission Date: 20090719
  Serious: Yes (Death)
  Sender: FDA-Public Use
  Company Number: 2009S1000002

PATIENT
  Age: 65 Year
  Sex: Male
  Weight: 87 kg

DRUGS (5)
  1. CUBICIN [Suspect]
  2. ENCAPRIN [Concomitant]
  3. LEVOFLOXACIN [Concomitant]
  4. MINOCYCLINE HCL [Concomitant]
  5. HEPARIN [Concomitant]

REACTIONS (2)
  - CATHETER SEPSIS [None]
  - ENTEROCOCCAL INFECTION [None]
